FAERS Safety Report 25626350 (Version 1)
Quarter: 2025Q3

REPORT INFORMATION
  Report Type: Spontaneous
  Country: US (occurrence: US)
  Receive Date: 20250731
  Receipt Date: 20250731
  Transmission Date: 20251021
  Serious: Yes (Other)
  Sender: RANBAXY
  Company Number: US-SUN PHARMACEUTICAL INDUSTRIES LTD-2025R1-519969

PATIENT
  Age: 36 Year
  Sex: Male

DRUGS (1)
  1. PREDNISONE [Suspect]
     Active Substance: PREDNISONE
     Indication: Pulmonary granuloma
     Route: 065

REACTIONS (5)
  - Chronic respiratory failure [Unknown]
  - Disease progression [Unknown]
  - Inappropriate antidiuretic hormone secretion [Unknown]
  - Malnutrition [Unknown]
  - Osteoporosis [Unknown]
